FAERS Safety Report 8271201-X (Version None)
Quarter: 2012Q2

REPORT INFORMATION
  Report Type: 
  Country: None (occurrence: None)
  Receive Date: 20120410
  Receipt Date: 20120326
  Transmission Date: 20120825
  Serious: Yes (Other)
  Sender: FDA-Public Use
  Company Number: US-ROCHE-769874

PATIENT
  Sex: Male

DRUGS (1)
  1. MYCOPHENOLATE MOFETIL (CELLCEPT) [Suspect]
     Indication: PRODUCT USED FOR UNKNOWN INDICATION
     Route: 065

REACTIONS (11)
  - LOWER RESPIRATORY TRACT INFECTION [None]
  - RASH MACULAR [None]
  - BACK PAIN [None]
  - COUGH [None]
  - RENAL DISORDER [None]
  - SKIN MASS [None]
  - DYSPNOEA [None]
  - CONTUSION [None]
  - BLADDER DISORDER [None]
  - HALLUCINATION, AUDITORY [None]
  - LUNG DISORDER [None]
